FAERS Safety Report 5960942-2 (Version None)
Quarter: 2008Q4

REPORT INFORMATION
  Report Type: 
  Country: None (occurrence: None)
  Receive Date: 20081119
  Receipt Date: 20081106
  Transmission Date: 20090506
  Serious: Yes (Death)
  Sender: FDA-Public Use
  Company Number: 2008S1000101

PATIENT
  Age: 4 Day
  Sex: Male

DRUGS (2)
  1. INOMAX [Suspect]
     Indication: NEONATAL RESPIRATORY DISTRESS SYNDROME
     Dosage: 20 PPM;CONT;INH
     Route: 055
     Dates: start: 20081019, end: 20081022
  2. INOMAX [Suspect]
     Indication: PERSISTENT FOETAL CIRCULATION
     Dosage: 20 PPM;CONT;INH
     Route: 055
     Dates: start: 20081019, end: 20081022

REACTIONS (6)
  - DEATH NEONATAL [None]
  - DEVICE MALFUNCTION [None]
  - DISSEMINATED INTRAVASCULAR COAGULATION [None]
  - GENERAL PHYSICAL HEALTH DETERIORATION [None]
  - HEART RATE DECREASED [None]
  - INTESTINAL PERFORATION [None]
